FAERS Safety Report 5804886-5 (Version None)
Quarter: 2008Q3

REPORT INFORMATION
  Report Type: 
  Country: None (occurrence: None)
  Receive Date: 20080707
  Receipt Date: 20080623
  Transmission Date: 20090109
  Serious: Yes (Hospitalization)
  Sender: FDA-Public Use
  Company Number: 2007BI010937

PATIENT
  Age: 44 Year
  Sex: Male

DRUGS (1)
  1. AVONEX [Suspect]
     Indication: MULTIPLE SCLEROSIS
     Dosage: 30 UG;QW;IM
     Route: 030
     Dates: start: 20051101

REACTIONS (6)
  - AIRWAY COMPLICATION OF ANAESTHESIA [None]
  - ARTHRALGIA [None]
  - ARTHROPATHY [None]
  - CARDIOVASCULAR DISORDER [None]
  - OSTEONECROSIS [None]
  - SOMNOLENCE [None]
